FAERS Safety Report 24384571 (Version 6)
Quarter: 2024Q4

REPORT INFORMATION
  Report Type: Spontaneous
  Country: US (occurrence: US)
  Receive Date: 20241001
  Receipt Date: 20241202
  Transmission Date: 20250115
  Serious: No
  Sender: PFIZER
  Company Number: US-PFIZER INC-PV202400122068

PATIENT
  Age: 59 Year
  Sex: Female

DRUGS (14)
  1. IBRANCE [Suspect]
     Active Substance: PALBOCICLIB
     Indication: Breast cancer female
     Dosage: 100 MG, CYCLIC (1 TABLET DAILY DAYS 1-21 OF EVERY 28 DAYS)
     Route: 048
     Dates: start: 20240918, end: 20241023
  2. IBRANCE [Suspect]
     Active Substance: PALBOCICLIB
     Dosage: 75MG TAB. TAKE 1 TABLET BY MOUTH DAILY ON DAYS 1-21 OF EVERY 28 DAY CYCLE
     Route: 048
  3. IBRANCE [Suspect]
     Active Substance: PALBOCICLIB
     Dosage: 75MG TAB. TAKE 1 TABLET BY MOUTH DAILY ON DAYS 1-21 OF EVERY 28 DAY CYCLE
     Route: 048
     Dates: start: 20241122
  4. FASLODEX [Concomitant]
     Active Substance: FULVESTRANT
     Dosage: UNK (250/5ML)
  5. FIBER THERAPY [Concomitant]
     Dosage: UNK
  6. LORATADINE [Concomitant]
     Active Substance: LORATADINE
     Dosage: UNK
  7. OMEPRAZOLE [Concomitant]
     Active Substance: OMEPRAZOLE
     Dosage: UNK
  8. ONDANSETRON [Concomitant]
     Active Substance: ONDANSETRON
     Dosage: UNK
  9. OXYCODONE [Concomitant]
     Active Substance: OXYCODONE
     Dosage: UNK
  10. PROCHLORPERAZINE [Concomitant]
     Active Substance: PROCHLORPERAZINE
     Dosage: UNK
  11. SENNOSIDES A AND B [Concomitant]
     Active Substance: SENNOSIDES A AND B
     Dosage: UNK
  12. VITAMIN B12 [Concomitant]
     Active Substance: CYANOCOBALAMIN
     Dosage: UNK
  13. VITAMIN C [Concomitant]
     Active Substance: ASCORBIC ACID
     Dosage: UNK
  14. VITAMIN D NOS [Concomitant]
     Active Substance: CHOLECALCIFEROL\ERGOCALCIFEROL
     Dosage: UNK

REACTIONS (13)
  - Diarrhoea [Unknown]
  - Abdominal discomfort [Unknown]
  - Decreased appetite [Not Recovered/Not Resolved]
  - Dyspepsia [Not Recovered/Not Resolved]
  - Full blood count decreased [Unknown]
  - Arthralgia [Unknown]
  - Back pain [Unknown]
  - Fatigue [Not Recovered/Not Resolved]
  - Nausea [Not Recovered/Not Resolved]
  - Dysgeusia [Not Recovered/Not Resolved]
  - Platelet count decreased [Unknown]
  - Ear disorder [Not Recovered/Not Resolved]
  - Haemoglobin decreased [Recovering/Resolving]

NARRATIVE: CASE EVENT DATE: 20240101
